FAERS Safety Report 4511774-3 (Version None)
Quarter: 2004Q4

REPORT INFORMATION
  Report Type: 
  Country: None (occurrence: None)
  Receive Date: 20041123
  Receipt Date: 20041123
  Transmission Date: 20050328
  Serious: Yes (Other)
  Sender: FDA-Public Use
  Company Number: None

PATIENT
  Age: 81 Year
  Sex: Male
  Weight: 82.5 kg

DRUGS (15)
  1. HYDROXYZINE [Suspect]
  2. METOPROLOL TARTRATE [Concomitant]
  3. LISINOPRIL [Concomitant]
  4. ATORVASTATIN CALCIUM [Concomitant]
  5. HYDROXYZINE PAMOATE [Concomitant]
  6. LORAZEPAM [Concomitant]
  7. COUMADIN [Concomitant]
  8. FUROSEMIDE [Concomitant]
  9. POTASSIUM CHLORIDE [Concomitant]
  10. WARFARIN SODIUM [Concomitant]
  11. ALBUTEROL/IPRATROPIUM [Concomitant]
  12. SERTRALINE HCL [Concomitant]
  13. PSYLLIUM SUGAR FREE POWDER [Concomitant]
  14. ISOSORBIDE DINITRATE [Concomitant]
  15. ATORVASTATIN [Concomitant]

REACTIONS (1)
  - HALLUCINATION [None]
